FAERS Safety Report 25988942 (Version 1)
Quarter: 2025Q4

REPORT INFORMATION
  Report Type: Spontaneous
  Country: US (occurrence: US)
  Receive Date: 20251103
  Receipt Date: 20251103
  Transmission Date: 20260118
  Serious: No
  Sender: RIGEL PHARMACEUTICALS
  Company Number: US-RIGEL PHARMACEUTICALS, INC.-20250300065

PATIENT
  Sex: Female
  Weight: 59.421 kg

DRUGS (1)
  1. GAVRETO [Suspect]
     Active Substance: PRALSETINIB
     Indication: Thyroid cancer
     Dosage: 200 MG, QD
     Route: 048
     Dates: start: 20250114

REACTIONS (4)
  - Hypotension [Unknown]
  - Dysphonia [Not Recovered/Not Resolved]
  - Product prescribing issue [Unknown]
  - Constipation [Unknown]

NARRATIVE: CASE EVENT DATE: 20250101
